FAERS Safety Report 14585888 (Version 1)
Quarter: 2018Q1

REPORT INFORMATION
  Report Type: Spontaneous
  Country: US (occurrence: US)
  Receive Date: 20180301
  Receipt Date: 20180301
  Transmission Date: 20180509
  Serious: No
  Sender: FDA-Public Use
  Company Number: US-ASTRAZENECA-2018SE24084

PATIENT
  Sex: Female
  Weight: 59.9 kg

DRUGS (1)
  1. MOVANTIK [Suspect]
     Active Substance: NALOXEGOL OXALATE
     Indication: CONSTIPATION
     Route: 048
     Dates: start: 201802, end: 20180221

REACTIONS (11)
  - Pain in extremity [Not Recovered/Not Resolved]
  - Migraine [Unknown]
  - Weight increased [Unknown]
  - Bowel movement irregularity [Unknown]
  - Peripheral swelling [Not Recovered/Not Resolved]
  - Abdominal pain [Unknown]
  - Contusion [Unknown]
  - Drug ineffective [Unknown]
  - Joint swelling [Not Recovered/Not Resolved]
  - Therapeutic response unexpected [Unknown]
  - Intentional product misuse [Unknown]
